FAERS Safety Report 7651309-X (Version None)
Quarter: 2011Q3

REPORT INFORMATION
  Report Type: 
  Country: None (occurrence: None)
  Receive Date: 20110802
  Receipt Date: 20110721
  Transmission Date: 20111222
  Serious: Yes (Hospitalization)
  Sender: FDA-Public Use
  Company Number: FR-PFIZER INC-2011166502

PATIENT
  Age: 20 Year
  Sex: Male

DRUGS (3)
  1. GEMTUZUMAB OZOGAMICIN [Suspect]
     Indication: ACUTE MYELOID LEUKAEMIA
     Dosage: 12 MG, 1X/DAY
     Route: 042
     Dates: start: 20080816, end: 20080816
  2. NOVANTRONE [Suspect]
     Indication: ACUTE MYELOID LEUKAEMIA
     Dosage: 24 MG, 1X/DAY
     Route: 042
     Dates: start: 20080813, end: 20080814
  3. CYTARABINE [Suspect]
     Indication: ACUTE MYELOID LEUKAEMIA
     Dosage: 1000 MG, 2X/DAY
     Route: 042
     Dates: start: 20080813, end: 20080817

REACTIONS (2)
  - CYTOLYTIC HEPATITIS [None]
  - MESENTERIC VEIN THROMBOSIS [None]
